FAERS Safety Report 4511224-7 (Version None)
Quarter: 2004Q4

REPORT INFORMATION
  Report Type: 
  Country: None (occurrence: None)
  Receive Date: 20041129
  Receipt Date: 20041115
  Transmission Date: 20050328
  Serious: Yes (Other)
  Sender: FDA-Public Use
  Company Number: GB-JNJFOC-20041103944

PATIENT
  Sex: Female
  Weight: 90 kg

DRUGS (7)
  1. REMICADE [Suspect]
     Route: 042
  2. REMICADE [Suspect]
     Route: 042
  3. WARFARIN [Concomitant]
  4. METFORMIN HCL [Concomitant]
  5. SPIRONOLACTONE [Concomitant]
  6. CO-DYDRAMOL [Concomitant]
  7. CO-DYDRAMOL [Concomitant]

REACTIONS (4)
  - ERYTHEMA [None]
  - INFUSION RELATED REACTION [None]
  - LARYNGEAL OEDEMA [None]
  - PARAESTHESIA [None]
